FAERS Safety Report 7921741-5 (Version None)
Quarter: 2011Q4

REPORT INFORMATION
  Report Type: 
  Country: None (occurrence: None)
  Receive Date: 20111117
  Receipt Date: 20111111
  Transmission Date: 20120403
  Serious: Yes (Hospitalization)
  Sender: FDA-Public Use
  Company Number: US-GLAXOSMITHKLINE-A0953428A

PATIENT
  Sex: Male

DRUGS (1)
  1. VOTRIENT [Suspect]
     Indication: HEPATIC NEOPLASM MALIGNANT
     Dosage: 800MG UNKNOWN

REACTIONS (2)
  - SEPSIS [None]
  - OFF LABEL USE [None]
